FAERS Safety Report 5821030-9 (Version None)
Quarter: 2008Q3

REPORT INFORMATION
  Report Type: 
  Country: None (occurrence: None)
  Receive Date: 20080724
  Receipt Date: 20080714
  Transmission Date: 20090109
  Serious: Yes (Other)
  Sender: FDA-Public Use
  Company Number: GB-ROCHE-571698

PATIENT
  Sex: Female
  Weight: 82.6 kg

DRUGS (5)
  1. ORLISTAT [Suspect]
     Indication: OBESITY
     Route: 048
     Dates: start: 20080416
  2. ROSUVASTATIN CALCIUM [Concomitant]
     Route: 048
  3. GLUCOSAMINE SULPHATE [Concomitant]
     Indication: ARTHRITIS
     Route: 048
  4. SERETIDE [Concomitant]
     Indication: ASTHMA
     Dosage: REPORTED AS: ASTHMATIC SPRAY
     Route: 055
  5. ZOLPIDEM TARTRATE [Concomitant]
     Indication: SLEEP DISORDER THERAPY
     Route: 048

REACTIONS (4)
  - ABDOMINAL PAIN LOWER [None]
  - ABSCESS NECK [None]
  - BASAL CELL CARCINOMA [None]
  - MICTURITION URGENCY [None]
